FAERS Safety Report 5382563-5 (Version None)
Quarter: 2007Q3

REPORT INFORMATION
  Report Type: 
  Country: None (occurrence: None)
  Receive Date: 20070710
  Receipt Date: 20070628
  Transmission Date: 20080115
  Serious: Yes (Other)
  Sender: FDA-Public Use
  Company Number: PHBS2007FR09637

PATIENT
  Age: 59 Year
  Sex: Female

DRUGS (1)
  1. IMATINIB MESYLATE [Suspect]
     Indication: CHRONIC MYELOID LEUKAEMIA

REACTIONS (9)
  - CYTOMEGALOVIRUS ANTIBODY POSITIVE [None]
  - DISSEMINATED INTRAVASCULAR COAGULATION [None]
  - EPSTEIN-BARR VIRUS ANTIBODY POSITIVE [None]
  - HEPATOMEGALY [None]
  - LYMPHOPROLIFERATIVE DISORDER [None]
  - NIGHT SWEATS [None]
  - PANCYTOPENIA [None]
  - PYREXIA [None]
  - SPLENOMEGALY [None]
